FAERS Safety Report 9486376 (Version 1)
Quarter: 2013Q3

REPORT INFORMATION
  Report Type: Spontaneous
  Country: US (occurrence: US)
  Receive Date: 20130829
  Receipt Date: 20130829
  Transmission Date: 20140515
  Serious: Yes (Death)
  Sender: FDA-Public Use
  Company Number: US-BAYER-2013-104108

PATIENT
  Age: 48 Year
  Sex: Male

DRUGS (2)
  1. STIVARGA [Suspect]
     Indication: RECTAL CANCER
     Dosage: 160 MG, QD, 21 ON 7 OFF
     Route: 048
  2. STIVARGA [Suspect]
     Indication: METASTASES TO LUNG

REACTIONS (1)
  - Large intestine perforation [Fatal]
